FAERS Safety Report 8323263-9 (Version None)
Quarter: 2012Q2

REPORT INFORMATION
  Report Type: 
  Country: None (occurrence: None)
  Receive Date: 20120430
  Receipt Date: 20120424
  Transmission Date: 20120825
  Serious: Yes (Hospitalization, Other)
  Sender: FDA-Public Use
  Company Number: CA-AMGEN-CANSP2012020699

PATIENT
  Age: 57 Year
  Sex: Female

DRUGS (7)
  1. MELOXICAM [Concomitant]
     Dosage: 15 MG, QD
  2. FOLIC ACID [Concomitant]
     Dosage: 1 MG, QD
  3. PANTOPRAZOLE [Concomitant]
     Dosage: 40 MG, QD
  4. MAXERAN [Concomitant]
     Dosage: UNK, QWK
  5. CELEXA [Concomitant]
     Dosage: 10 MG, QD
  6. METHOTREXATE [Concomitant]
     Dosage: 20 MG, QWK
  7. ENBREL [Suspect]
     Indication: RHEUMATOID ARTHRITIS
     Dosage: 50 MG, QWK
     Dates: start: 20120216

REACTIONS (1)
  - BLOOD PRESSURE INCREASED [None]
